FAERS Safety Report 5884712-9 (Version None)
Quarter: 2008Q3

REPORT INFORMATION
  Report Type: 
  Country: None (occurrence: None)
  Receive Date: 20080911
  Receipt Date: 20080827
  Transmission Date: 20090109
  Serious: Yes (Other)
  Sender: FDA-Public Use
  Company Number: JPI-P-004483

PATIENT
  Age: 3 Decade
  Sex: Female

DRUGS (1)
  1. LUVOX [Suspect]
     Indication: DRUG USE FOR UNKNOWN INDICATION
     Dosage: (UNKNOWN), ORAL
     Route: 048

REACTIONS (1)
  - TONGUE PARALYSIS [None]
